FAERS Safety Report 9870819 (Version 3)
Quarter: 2014Q2

REPORT INFORMATION
  Report Type: Spontaneous
  Country: DK (occurrence: DK)
  Receive Date: 20140205
  Receipt Date: 20140513
  Transmission Date: 20141212
  Serious: Yes (Hospitalization, Other)
  Sender: FDA-Public Use
  Company Number: DK-ABBVIE-14P-044-1196342-00

PATIENT
  Age: 51 Year
  Sex: Female
  Weight: 58 kg

DRUGS (2)
  1. HUMIRA [Suspect]
     Indication: CROHN^S DISEASE
     Dosage: START DOSE 80 MG
     Route: 058
     Dates: start: 20100601, end: 201009
  2. REMICADE [Suspect]
     Indication: CROHN^S DISEASE
     Dates: start: 20090129, end: 2010

REACTIONS (13)
  - Systemic lupus erythematosus [Unknown]
  - Pneumonia [Unknown]
  - Malaise [Unknown]
  - Abscess intestinal [Recovered/Resolved]
  - Infection [Unknown]
  - Pain [Unknown]
  - Butterfly rash [Unknown]
  - C-reactive protein increased [Unknown]
  - Pyrexia [Unknown]
  - Antiphospholipid syndrome [Unknown]
  - Myalgia [Unknown]
  - Fatigue [Unknown]
  - Arthralgia [Unknown]
